FAERS Safety Report 7259423-8 (Version None)
Quarter: 2011Q1

REPORT INFORMATION
  Report Type: 
  Country: None (occurrence: None)
  Receive Date: 20110129
  Receipt Date: 20100817
  Transmission Date: 20110831
  Serious: No
  Sender: FDA-Public Use
  Company Number: US-ABBOTT-10P-163-0664783-00

PATIENT
  Age: 68 Year
  Sex: Female

DRUGS (6)
  1. CIPRO [Concomitant]
     Indication: ARTHRITIS
     Route: 048
  2. DIOCYCLINE [Concomitant]
     Indication: PRODUCT USED FOR UNKNOWN INDICATION
  3. FLAGYL [Concomitant]
     Indication: ARTHRITIS
     Route: 048
  4. HUMIRA [Suspect]
     Indication: PSORIATIC ARTHROPATHY
     Dates: start: 20100802
  5. SYNTHROID [Concomitant]
     Indication: HYPOTHYROIDISM
  6. HYDROCHLOROTHIAZIDE [Concomitant]
     Indication: HYPERTENSION

REACTIONS (5)
  - INJECTION SITE URTICARIA [None]
  - INJECTION SITE ERYTHEMA [None]
  - SKIN DISCOLOURATION [None]
  - RASH [None]
  - INJECTION SITE PRURITUS [None]
